FAERS Safety Report 6547268-3 (Version None)
Quarter: 2010Q1

REPORT INFORMATION
  Report Type: 
  Country: None (occurrence: None)
  Receive Date: 20100122
  Receipt Date: 20091028
  Transmission Date: 20100710
  Serious: No
  Sender: FDA-Public Use
  Company Number: US-BAUSCH-2009BL005511

PATIENT
  Age: 65 Year
  Sex: Female

DRUGS (5)
  1. ZYLET [Suspect]
     Indication: MEIBOMIANITIS
     Route: 047
     Dates: start: 20090917, end: 20090929
  2. ZYLET [Suspect]
     Indication: PUNCTATE KERATITIS
     Route: 047
     Dates: start: 20090917, end: 20090929
  3. LOVAZA [Concomitant]
  4. GENTEAL PM LUBRICANT EYE OINTMENT [Concomitant]
  5. SYSTANE ULTRA [Concomitant]

REACTIONS (1)
  - STOMATITIS [None]
